FAERS Safety Report 11505560 (Version 2)
Quarter: 2015Q4

REPORT INFORMATION
  Report Type: Spontaneous
  Country: US (occurrence: None)
  Receive Date: 20150911
  Receipt Date: 20151008
  Transmission Date: 20160304
  Serious: Yes (Hospitalization)
  Sender: FDA-Public Use
  Company Number: 1713747-2015-999303

PATIENT
  Sex: Female
  Weight: 86 kg

DRUGS (19)
  1. FUROSEMIDE. [Concomitant]
     Active Substance: FUROSEMIDE
  2. GEMFIBROZIL. [Concomitant]
     Active Substance: GEMFIBROZIL
  3. PROMETHAZINE [Concomitant]
     Active Substance: PROMETHAZINE\PROMETHAZINE HYDROCHLORIDE
  4. LIBERTY CYCLER [Concomitant]
     Active Substance: DEVICE
  5. CARVEDILOL. [Concomitant]
     Active Substance: CARVEDILOL
  6. HYDROCODONE BITARTRATE AND ACETAMINOPHEN [Concomitant]
     Active Substance: ACETAMINOPHEN\HYDROCODONE BITARTRATE
  7. BUMETANIDE. [Concomitant]
     Active Substance: BUMETANIDE
  8. CYCLOBENZAPRINE [Concomitant]
     Active Substance: CYCLOBENZAPRINE
  9. PRAMIPEXOLE. [Concomitant]
     Active Substance: PRAMIPEXOLE
  10. LIBERTY CYCLER SET [Concomitant]
     Active Substance: DEVICE
  11. ASPIRIN. [Concomitant]
     Active Substance: ASPIRIN
  12. INSULIN GLARGINE [Concomitant]
     Active Substance: INSULIN GLARGINE
  13. PRASUGREL [Concomitant]
     Active Substance: PRASUGREL
  14. CLONIDINE. [Concomitant]
     Active Substance: CLONIDINE
  15. MAGNESIUM OXIDE. [Concomitant]
     Active Substance: MAGNESIUM OXIDE
  16. DELFLEX [Suspect]
     Active Substance: CALCIUM CHLORIDE\DEXTROSE MONOHYDRATE\MAGNESIUM CHLORIDE\SODIUM CHLORIDE\SODIUM LACTATE
     Indication: PERITONEAL DIALYSIS
     Route: 033
  17. ZOLPIDEM [Concomitant]
     Active Substance: ZOLPIDEM\ZOLPIDEM TARTRATE
  18. INSULIN LISPRO [Concomitant]
     Active Substance: INSULIN LISPRO
  19. ONDANSETRON [Concomitant]
     Active Substance: ONDANSETRON

REACTIONS (6)
  - Blood glucose increased [None]
  - Hypervolaemia [None]
  - Blood albumin decreased [None]
  - Oedema [None]
  - Fluid overload [None]
  - Pain [None]

NARRATIVE: CASE EVENT DATE: 20150824
